FAERS Safety Report 4628775-7 (Version None)
Quarter: 2005Q2

REPORT INFORMATION
  Report Type: 
  Country: None (occurrence: None)
  Receive Date: 20050406
  Receipt Date: 20050309
  Transmission Date: 20051028
  Serious: Yes (Death, Hospitalization)
  Sender: FDA-Public Use
  Company Number: GBR-2005-0001614

PATIENT
  Age: 74 Year
  Sex: Male

DRUGS (1)
  1. MORPHINE SUL TAB [Suspect]
     Dosage: 60 MG, DAILY, ORAL
     Route: 048
     Dates: start: 20040803, end: 20040810

REACTIONS (2)
  - CONFUSIONAL STATE [None]
  - DISEASE PROGRESSION [None]
